FAERS Safety Report 8573601-7 (Version None)
Quarter: 2012Q2

REPORT INFORMATION
  Report Type: 
  Country: None (occurrence: None)
  Receive Date: 20120423
  Receipt Date: 20100510
  Transmission Date: 20120825
  Serious: Yes (Hospitalization)
  Sender: FDA-Public Use
  Company Number: PHHY2010US26382

PATIENT
  Age: 62 Year
  Sex: Male

DRUGS (2)
  1. EXJADE [Suspect]
     Indication: ANAEMIA
     Dosage: 1500 MG, QD, ORAL
     Route: 048
  2. CHEMOTHERAPEUTICS (CHEMOTHERAPEUTICS,OTHER) UNKNOWN [Concomitant]

REACTIONS (1)
  - PYREXIA [None]
